FAERS Safety Report 5723916-2 (Version None)
Quarter: 2008Q2

REPORT INFORMATION
  Report Type: 
  Country: None (occurrence: None)
  Receive Date: 20080430
  Receipt Date: 20080422
  Transmission Date: 20081010
  Serious: Yes (Other)
  Sender: FDA-Public Use
  Company Number: US-ALLERGAN-0804799US

PATIENT

DRUGS (4)
  1. ZYMAR [Suspect]
     Dosage: UNK, QID
     Route: 047
  2. ZYMAR [Suspect]
     Indication: POSTOPERATIVE CARE
  3. OPTIVE [Suspect]
     Indication: DRY EYE
     Dosage: UNK, Q1HR
     Route: 047
  4. OPTIVE [Suspect]
     Indication: POSTOPERATIVE CARE

REACTIONS (1)
  - CORNEAL EROSION [None]
